FAERS Safety Report 5015125-X (Version None)
Quarter: 2006Q2

REPORT INFORMATION
  Report Type: 
  Country: None (occurrence: None)
  Receive Date: 20060530
  Receipt Date: 20060520
  Transmission Date: 20061013
  Serious: Yes (Other)
  Sender: FDA-Public Use
  Company Number: 220430

PATIENT
  Age: 60 Year
  Sex: Male

DRUGS (2)
  1. XOLAIR [Suspect]
     Indication: ASTHMA
     Dosage: 375 MG, SUBCUTANEOUS
     Route: 058
     Dates: start: 20050822
  2. PREDNISONE TAB [Concomitant]

REACTIONS (5)
  - ASTHMA [None]
  - INCREASED UPPER AIRWAY SECRETION [None]
  - MALAISE [None]
  - NON-CARDIAC CHEST PAIN [None]
  - PRODUCTIVE COUGH [None]
